FAERS Safety Report 25894270 (Version 1)
Quarter: 2025Q4

REPORT INFORMATION
  Report Type: Spontaneous
  Country: EU (occurrence: EU)
  Receive Date: 20251008
  Receipt Date: 20251008
  Transmission Date: 20260118
  Serious: Yes (Life-Threatening, Hospitalization, Other)
  Sender: ACCORD
  Company Number: None

PATIENT
  Age: 81 Year
  Sex: Male

DRUGS (4)
  1. FLUOROURACIL [Suspect]
     Active Substance: FLUOROURACIL
     Indication: Adenocarcinoma gastric stage IV
     Dosage: 700 MG BOLUS ON DAYS 1 AND 2; 2100 MG IN ELASTOMER FOR 48 HOURS
     Dates: start: 20250811, end: 20250812
  2. NIVOLUMAB [Suspect]
     Active Substance: NIVOLUMAB
     Indication: Adenocarcinoma gastric stage IV
     Dosage: 240 MG EVERY 14 DAYS
     Dates: start: 20250811, end: 20250811
  3. OXALIPLATIN [Suspect]
     Active Substance: OXALIPLATIN
     Indication: Adenocarcinoma gastric stage IV
     Dosage: PERFORMED 148 MG, FULL DOSE WITH BODY SURFACE AREA 1.75
     Dates: start: 20250811, end: 20250811
  4. ARIXTRA [Suspect]
     Active Substance: FONDAPARINUX SODIUM
     Indication: Peripheral vein thrombosis
     Dosage: 7.5 MG
     Dates: start: 20250725, end: 20250814

REACTIONS (3)
  - Shock haemorrhagic [Recovering/Resolving]
  - Arterial haemorrhage [Recovering/Resolving]
  - Haematoma [Not Recovered/Not Resolved]

NARRATIVE: CASE EVENT DATE: 20250812
